FAERS Safety Report 20093932 (Version 5)
Quarter: 2024Q2

REPORT INFORMATION
  Report Type: Report from Study
  Country: NL (occurrence: NL)
  Receive Date: 20211121
  Receipt Date: 20240613
  Transmission Date: 20240716
  Serious: Yes (Hospitalization, Other)
  Sender: FDA-Public Use
  Company Number: NL-ABBVIE-21K-114-4167180-00

PATIENT
  Sex: Male

DRUGS (6)
  1. CARBIDOPA\LEVODOPA [Suspect]
     Active Substance: CARBIDOPA\LEVODOPA
     Indication: Parkinson^s disease
     Dosage: MD: 5.0 ML; CD: 3.5 ML/H; ED 2.0 ML; NIGHT MD: 0.0 ML, CND: 1.7 ML/H, END: 1.0 ML
     Route: 050
  2. CARBIDOPA\LEVODOPA [Suspect]
     Active Substance: CARBIDOPA\LEVODOPA
     Dosage: ND: 0.0 ML, CND: 1.7 ML/H, END: 1.0 ML
     Route: 050
  3. CARBIDOPA\LEVODOPA [Suspect]
     Active Substance: CARBIDOPA\LEVODOPA
     Dosage: MD: 5.0 ML; CD: 3.5 ML/H; ED 2.0 ML;
     Route: 050
  4. CARBIDOPA\LEVODOPA [Suspect]
     Active Substance: CARBIDOPA\LEVODOPA
     Dosage: ND: 0.0 ML, CND: 1.7 ML/H, END: 1.0 ML
     Route: 050
  5. POLYETHYLENE GLYCOLS [Concomitant]
     Active Substance: POLYETHYLENE GLYCOLS
     Indication: Product used for unknown indication
  6. MOVICOLON [Concomitant]
     Active Substance: POLYETHYLENE GLYCOL 3350\POTASSIUM CHLORIDE\SODIUM BICARBONATE\SODIUM CHLORIDE
     Indication: Product used for unknown indication
     Dosage: 0.5 TO 2 SACHETS PER DAY

REACTIONS (30)
  - Pneumonia bacterial [Unknown]
  - Cervical vertebral fracture [Not Recovered/Not Resolved]
  - Viral infection [Recovered/Resolved]
  - Dyspnoea [Recovering/Resolving]
  - Gastrointestinal disorder [Recovered/Resolved]
  - Complication associated with device [Unknown]
  - Device issue [Unknown]
  - Cough [Recovered/Resolved]
  - Muscle tightness [Not Recovered/Not Resolved]
  - Fall [Not Recovered/Not Resolved]
  - Hypotension [Not Recovered/Not Resolved]
  - Cardiovascular disorder [Not Recovered/Not Resolved]
  - Weight increased [Recovered/Resolved]
  - Appetite disorder [Not Recovered/Not Resolved]
  - Muscle spasms [Not Recovered/Not Resolved]
  - Weight decreased [Recovered/Resolved]
  - Syncope [Recovered/Resolved]
  - Hallucination [Unknown]
  - Fall [Recovered/Resolved]
  - Visual field defect [Not Recovered/Not Resolved]
  - Dementia [Not Recovered/Not Resolved]
  - Therapeutic product effect incomplete [Not Recovered/Not Resolved]
  - Oxygen saturation abnormal [Unknown]
  - Muscle rigidity [Not Recovered/Not Resolved]
  - Weight decreased [Not Recovered/Not Resolved]
  - Blood test abnormal [Unknown]
  - Head titubation [Unknown]
  - Musculoskeletal stiffness [Not Recovered/Not Resolved]
  - Freezing phenomenon [Not Recovered/Not Resolved]
  - Tremor [Unknown]

NARRATIVE: CASE EVENT DATE: 20220101
